FAERS Safety Report 8608287-6 (Version None)
Quarter: 2012Q3

REPORT INFORMATION
  Report Type: 
  Country: None (occurrence: None)
  Receive Date: 20120809
  Receipt Date: 20120809
  Transmission Date: 20120928
  Serious: Yes (Other)
  Sender: FDA-Public Use
  Company Number: None

PATIENT
  Age: 52 Year
  Sex: Female
  Weight: 88.4514 kg

DRUGS (1)
  1. ESTRADIOL [Suspect]
     Indication: HORMONE REPLACEMENT THERAPY
     Dosage: 0.0375 MG 1 TIME PER WEEK TRANSDERMAL
     Route: 062
     Dates: start: 20120620, end: 20120715

REACTIONS (6)
  - URTICARIA [None]
  - SWELLING [None]
  - APPLICATION SITE ERYTHEMA [None]
  - DERMATITIS CONTACT [None]
  - PRURITUS [None]
  - SCAR [None]
